FAERS Safety Report 10265403 (Version 1)
Quarter: 2014Q2

REPORT INFORMATION
  Report Type: Spontaneous
  Country: FR (occurrence: None)
  Receive Date: 20140624
  Receipt Date: 20140624
  Transmission Date: 20141212
  Serious: Yes (Hospitalization, Other)
  Sender: FDA-Public Use
  Company Number: IMP_07688_2014

PATIENT
  Age: 23 Year
  Sex: Male

DRUGS (2)
  1. BACLOFEN [Suspect]
     Indication: ALCOHOL ABUSE
     Dosage: [NOT THE PRESCRIBED DOSE, SUPPOSED DOSE]
     Route: 048
  2. OXAZEPAM [Suspect]
     Indication: PRODUCT USED FOR UNKNOWN INDICATION
     Dosage: [NOT THE PRESCRIBED DOSE, DF]
     Route: 048

REACTIONS (4)
  - Toxicity to various agents [None]
  - Intentional overdose [None]
  - Confusional state [None]
  - Somnolence [None]
